FAERS Safety Report 7926693-X (Version None)
Quarter: 2011Q4

REPORT INFORMATION
  Report Type: 
  Country: None (occurrence: None)
  Receive Date: 20111116
  Receipt Date: 20111102
  Transmission Date: 20120403
  Serious: Yes (Death, Hospitalization)
  Sender: FDA-Public Use
  Company Number: 2009AL002562

PATIENT
  Age: 64 Year
  Sex: Male
  Weight: 97.0698 kg

DRUGS (36)
  1. AMARYL [Concomitant]
  2. STARLIX [Concomitant]
  3. VIAGRA [Concomitant]
  4. MYCOLOG [Concomitant]
  5. DIGOXIN [Suspect]
     Indication: ATRIAL FIBRILLATION
     Dosage: 0.250 MG;QD;PO
     Route: 048
     Dates: start: 20001030, end: 20071215
  6. UROCRIT [Concomitant]
  7. LASIX [Concomitant]
  8. FOLIC ACID [Concomitant]
  9. GLUCOSAMINE [Concomitant]
  10. ATARAX [Concomitant]
  11. LIPITOR [Concomitant]
  12. ACETAMINOPHEN [Concomitant]
  13. PRAMOTIC [Concomitant]
  14. PHENERGAN [Concomitant]
  15. CORDARONE [Concomitant]
  16. TRENTAL [Concomitant]
  17. CLONIDINE [Concomitant]
  18. VITAMIN E [Concomitant]
  19. TRICOR [Concomitant]
  20. ALBUTEROL SULFATE [Concomitant]
  21. MICARDIS [Concomitant]
  22. PLAVIX [Concomitant]
  23. ASCORBIC ACID [Concomitant]
  24. BETAPACE [Concomitant]
  25. RYTHMOL [Concomitant]
  26. HYDRALAZINE HCL [Concomitant]
  27. ALLOPURINOL [Concomitant]
  28. ASPIRIN [Concomitant]
  29. LORAZEPAM [Concomitant]
  30. ASTELIN [Concomitant]
  31. MULTI-VITAMIN [Concomitant]
  32. HUMALOG [Concomitant]
  33. BACTROBAN [Concomitant]
  34. GLUCOPHAGE [Concomitant]
  35. METFORMIN HCL [Concomitant]
  36. LOPRESSOR [Concomitant]

REACTIONS (62)
  - PALPITATIONS [None]
  - MYOCARDIAL INFARCTION [None]
  - DIABETES MELLITUS INADEQUATE CONTROL [None]
  - ARTERIOSCLEROSIS [None]
  - VENTRICULAR EXTRASYSTOLES [None]
  - AORTIC ARTERIOSCLEROSIS [None]
  - LEFT VENTRICULAR DYSFUNCTION [None]
  - PULMONARY VALVE INCOMPETENCE [None]
  - NEUROPATHY PERIPHERAL [None]
  - LEFT VENTRICULAR HYPERTROPHY [None]
  - HEART RATE DECREASED [None]
  - HALLUCINATION [None]
  - PERIPHERAL ARTERIAL OCCLUSIVE DISEASE [None]
  - CATARACT OPERATION [None]
  - EXCORIATION [None]
  - HYPERCHOLESTEROLAEMIA [None]
  - BLOOD BILIRUBIN INCREASED [None]
  - CARDIAC MURMUR [None]
  - CORONARY ARTERY OCCLUSION [None]
  - SPINAL OSTEOARTHRITIS [None]
  - GLOMERULAR FILTRATION RATE DECREASED [None]
  - ELECTROCARDIOGRAM Q WAVE ABNORMAL [None]
  - BLOOD CALCIUM INCREASED [None]
  - ANGINA PECTORIS [None]
  - HYPOAESTHESIA [None]
  - CERUMEN IMPACTION [None]
  - EYE DISORDER [None]
  - TREATMENT NONCOMPLIANCE [None]
  - HAEMATURIA [None]
  - UNEVALUABLE EVENT [None]
  - RENAL ARTERY STENOSIS [None]
  - BLOOD UREA NITROGEN/CREATININE RATIO INCREASED [None]
  - TRICUSPID VALVE INCOMPETENCE [None]
  - ATRIAL FIBRILLATION [None]
  - BURSITIS [None]
  - CARDIOMYOPATHY [None]
  - LEFT ATRIAL DILATATION [None]
  - BLOOD CREATININE INCREASED [None]
  - INTERNATIONAL NORMALISED RATIO DECREASED [None]
  - COUGH [None]
  - MULTIPLE INJURIES [None]
  - BLOOD PRESSURE INADEQUATELY CONTROLLED [None]
  - INTERMITTENT CLAUDICATION [None]
  - SKIN ULCER [None]
  - CHRONIC OBSTRUCTIVE PULMONARY DISEASE [None]
  - MITRAL VALVE INCOMPETENCE [None]
  - BLOOD UREA INCREASED [None]
  - VENTRICULAR HYPOKINESIA [None]
  - ECONOMIC PROBLEM [None]
  - HAEMORRHAGE [None]
  - VITREOUS HAEMORRHAGE [None]
  - DEPRESSION [None]
  - FATIGUE [None]
  - WOUND [None]
  - RENAL CYST [None]
  - GALLBLADDER POLYP [None]
  - NAUSEA [None]
  - VISION BLURRED [None]
  - BLOOD TRIGLYCERIDES INCREASED [None]
  - AORTIC VALVE SCLEROSIS [None]
  - ELECTROCARDIOGRAM QT SHORTENED [None]
  - BLOOD POTASSIUM INCREASED [None]
